FAERS Safety Report 24767411 (Version 2)
Quarter: 2025Q1

REPORT INFORMATION
  Report Type: Report from Study
  Country: JP (occurrence: JP)
  Receive Date: 20241223
  Receipt Date: 20250103
  Transmission Date: 20250409
  Serious: Yes (Other)
  Sender: RADIUS PHARM
  Company Number: JP-RADIUS HEALTH INC.-2024JP010443

PATIENT
  Age: 71 Year
  Sex: Female

DRUGS (2)
  1. ABALOPARATIDE [Suspect]
     Active Substance: ABALOPARATIDE
     Indication: Osteoporosis
     Route: 058
     Dates: start: 20241209, end: 20241211
  2. ABALOPARATIDE [Suspect]
     Active Substance: ABALOPARATIDE
     Route: 058
     Dates: start: 20241213

REACTIONS (2)
  - Constipation [Recovering/Resolving]
  - Haematochezia [Unknown]

NARRATIVE: CASE EVENT DATE: 20241211
